FAERS Safety Report 7962044-2 (Version None)
Quarter: 2011Q4

REPORT INFORMATION
  Report Type: 
  Country: None (occurrence: None)
  Receive Date: 20111207
  Receipt Date: 20111130
  Transmission Date: 20120403
  Serious: Yes (Other)
  Sender: FDA-Public Use
  Company Number: DE-JNJFOC-20111111717

PATIENT
  Age: 55 Year
  Sex: Female

DRUGS (5)
  1. RISPERDAL CONSTA [Suspect]
     Indication: PRODUCT USED FOR UNKNOWN INDICATION
     Dosage: DOSAGE AND FREQUENCY UNSPECIFIED
     Route: 030
     Dates: start: 19980101, end: 20111001
  2. TRUXAL [Concomitant]
     Route: 065
  3. SOLIAN [Concomitant]
     Route: 065
  4. HALOPERIDOL [Suspect]
     Indication: PRODUCT USED FOR UNKNOWN INDICATION
     Route: 065
  5. DIAZEPAM [Concomitant]
     Route: 065

REACTIONS (1)
  - ABSCESS [None]
